FAERS Safety Report 5065866-3 (Version None)
Quarter: 2006Q3

REPORT INFORMATION
  Report Type: 
  Country: None (occurrence: None)
  Receive Date: 20060726
  Receipt Date: 20060711
  Transmission Date: 20061208
  Serious: Yes (Hospitalization)
  Sender: FDA-Public Use
  Company Number: US-CVT-061499

PATIENT
  Age: 91 Year
  Sex: Female
  Weight: 46.3 kg

DRUGS (9)
  1. RANEXA [Suspect]
     Indication: ANGINA PECTORIS
     Dosage: 500 MG, BID, ORAL; SEE IMAGE
     Route: 048
     Dates: start: 20060621, end: 20060707
  2. RANEXA [Suspect]
     Indication: ANGINA PECTORIS
     Dosage: 500 MG, BID, ORAL; SEE IMAGE
     Route: 048
     Dates: start: 20060707, end: 20060709
  3. RANEXA [Suspect]
     Indication: ANGINA PECTORIS
     Dosage: 500 MG, BID, ORAL; SEE IMAGE
     Route: 048
     Dates: start: 20060711
  4. WARFARIN/0014801/ (WARFARIN) [Concomitant]
  5. PLAVIX [Concomitant]
  6. PRAVACHOL [Concomitant]
  7. INDERAL LA [Concomitant]
  8. LASIX/00032601/(FUROSEMIDE) [Concomitant]
  9. NITROGLYCERIN [Concomitant]

REACTIONS (2)
  - ANGINA UNSTABLE [None]
  - TRANSIENT ISCHAEMIC ATTACK [None]
